FAERS Safety Report 4987984-8 (Version None)
Quarter: 2006Q2

REPORT INFORMATION
  Report Type: 
  Country: None (occurrence: None)
  Receive Date: 20060424
  Receipt Date: 20060414
  Transmission Date: 20061013
  Serious: Yes (Death, Hospitalization)
  Sender: FDA-Public Use
  Company Number: 2006-BP-04272RO

PATIENT
  Age: 63 Year
  Sex: Male

DRUGS (8)
  1. AZATHIOPRINE [Suspect]
     Indication: PROPHYLAXIS AGAINST TRANSPLANT REJECTION
     Dosage: 100 MG/DAY
  2. RABBIT ANTI-THYMOCYTE GLOBULIN (ANTITHYMOCYTE IMMUNOGLOBULIN (RABBIT) [Suspect]
     Indication: PROPHYLAXIS AGAINST TRANSPLANT REJECTION
     Dosage: 3 MG/KG FOR 3 DAYS
  3. METHYLPREDNISOLONE [Suspect]
     Indication: PROPHYLAXIS AGAINST TRANSPLANT REJECTION
     Dosage: 0.4 MG/KG, IV
     Route: 042
  4. CYCLOSPORINE [Suspect]
     Indication: PROPHYLAXIS AGAINST TRANSPLANT REJECTION
     Dosage: TROUGH LEVEL, 250-300 MCG/L
  5. TACROLIMUS (TACROLIMUS) [Suspect]
     Indication: PROPHYLAXIS AGAINST TRANSPLANT REJECTION
     Dosage: TROUGH LEVEL, 12-15 MCG/L
  6. AMPHOTERICIN (AMPHOTERICIN) [Concomitant]
  7. GANCICLOVIR [Concomitant]
  8. ACYCLOVIR [Concomitant]

REACTIONS (19)
  - ASPERGILLOSIS [None]
  - CARDIAC ARREST [None]
  - CARDIAC TAMPONADE [None]
  - CARDIOGENIC SHOCK [None]
  - CARDIOMEGALY [None]
  - CIRCULATORY COLLAPSE [None]
  - CYTOMEGALOVIRUS INFECTION [None]
  - DEPRESSED LEVEL OF CONSCIOUSNESS [None]
  - DYSPNOEA [None]
  - GASTRITIS FUNGAL [None]
  - KIDNEY INFECTION [None]
  - LUNG TRANSPLANT REJECTION [None]
  - MYOCARDITIS MYCOTIC [None]
  - PERICARDITIS FUNGAL [None]
  - PLEURAL EFFUSION [None]
  - PULMONARY MYCOSIS [None]
  - RENAL FAILURE ACUTE [None]
  - RESPIRATORY FAILURE [None]
  - THYROID DISORDER [None]
